FAERS Safety Report 6552223-3 (Version None)
Quarter: 2010Q1

REPORT INFORMATION
  Report Type: 
  Country: None (occurrence: None)
  Receive Date: 20100126
  Receipt Date: 20100115
  Transmission Date: 20100710
  Serious: Yes (Hospitalization, Other)
  Sender: FDA-Public Use
  Company Number: US-JNJFOC-20100106478

PATIENT
  Sex: Male
  Weight: 48.99 kg

DRUGS (2)
  1. REMICADE [Suspect]
     Indication: CROHN'S DISEASE
     Dosage: (DOSE, DATE AND FREQUENCY NOT PROVIDED)
     Route: 042
  2. REMICADE [Suspect]
     Dosage: 1 PRIOR TO BASELINE
     Route: 042

REACTIONS (2)
  - ABDOMINAL PAIN [None]
  - CYTOMEGALOVIRUS INFECTION [None]
